FAERS Safety Report 16184711 (Version 1)
Quarter: 2019Q2

REPORT INFORMATION
  Report Type: Spontaneous
  Country: AU (occurrence: AU)
  Receive Date: 20190411
  Receipt Date: 20190411
  Transmission Date: 20190711
  Serious: Yes (Hospitalization)
  Sender: FDA-Public Use
  Company Number: AU-MYLANLABS-2019M1034316

PATIENT
  Sex: Female

DRUGS (1)
  1. HYDRENE 25/50 [Suspect]
     Active Substance: HYDROCHLOROTHIAZIDE\TRIAMTERENE
     Indication: PRODUCT USED FOR UNKNOWN INDICATION
     Dosage: UNK

REACTIONS (5)
  - Gait disturbance [Unknown]
  - Muscular weakness [Unknown]
  - Fall [Unknown]
  - Muscle spasms [Unknown]
  - Dysstasia [Unknown]
